FAERS Safety Report 5123693-2 (Version None)
Quarter: 2006Q4

REPORT INFORMATION
  Report Type: 
  Country: None (occurrence: None)
  Receive Date: 20061010
  Receipt Date: 20060911
  Transmission Date: 20070319
  Serious: Yes (Disabling)
  Sender: FDA-Public Use
  Company Number: DEWYE890711SEP06

PATIENT
  Sex: Female

DRUGS (6)
  1. ENBREL [Suspect]
     Indication: RHEUMATOID ARTHRITIS
     Route: 058
     Dates: start: 20040701
  2. METHOTREXATE [Suspect]
     Indication: RHEUMATOID ARTHRITIS
     Route: 048
     Dates: start: 20040301
  3. PREDNISOLONE [Suspect]
     Indication: RHEUMATOID ARTHRITIS
     Route: 048
     Dates: start: 20000101
  4. COLECALCIFEROL [Concomitant]
  5. FOLIC ACID [Concomitant]
     Route: 048
  6. CALCIUM GLUCONATE [Concomitant]
     Route: 048

REACTIONS (3)
  - DISEASE RECURRENCE [None]
  - TOOTH INFECTION [None]
  - TOOTH LOSS [None]
